FAERS Safety Report 19797869 (Version 1)
Quarter: 2021Q3

REPORT INFORMATION
  Report Type: Other
  Country: CA (occurrence: CA)
  Receive Date: 20210907
  Receipt Date: 20210907
  Transmission Date: 20211014
  Serious: Yes (Other)
  Sender: FDA-Public Use
  Company Number: CA-ACCORD-237406

PATIENT
  Age: 15 Year
  Sex: Male

DRUGS (4)
  1. MYCOPHENOLIC ACID. [Suspect]
     Active Substance: MYCOPHENOLIC ACID
     Indication: TEMPORAL LOBE EPILEPSY
     Route: 065
  2. CYCLOPHOSPHAMIDE/CYCLOPHOSPHAMIDE MONOHYDRATE [Suspect]
     Active Substance: CYCLOPHOSPHAMIDE
     Indication: TEMPORAL LOBE EPILEPSY
     Route: 065
  3. RITUXIMAB. [Suspect]
     Active Substance: RITUXIMAB
     Indication: TEMPORAL LOBE EPILEPSY
     Route: 065
  4. METHYLPREDNISOLONE. [Suspect]
     Active Substance: METHYLPREDNISOLONE
     Indication: TEMPORAL LOBE EPILEPSY
     Route: 042

REACTIONS (5)
  - Off label use [Unknown]
  - Temporal lobe epilepsy [Unknown]
  - Condition aggravated [Unknown]
  - Drug ineffective [Unknown]
  - Neuropathy peripheral [Unknown]
